FAERS Safety Report 8775031 (Version 1)
Quarter: 2012Q4

REPORT INFORMATION
  Report Type: 
  Country: JP (occurrence: JP)
  Receive Date: 20120910
  Receipt Date: 20120910
  Transmission Date: 20130627
  Serious: Yes (Death, Other)
  Sender: FDA-Public Use
  Company Number: JP-BAYER-201014982BYL

PATIENT
  Age: 61 Year
  Sex: Female

DRUGS (2)
  1. NEXAVAR [Suspect]
     Indication: RENAL CELL CARCINOMA
     Dosage: 400 mg, BID
     Route: 048
     Dates: start: 20100825
  2. INTERFERON ALFA [Concomitant]

REACTIONS (6)
  - Multi-organ failure [Fatal]
  - Sepsis [Fatal]
  - Large intestine perforation [Not Recovered/Not Resolved]
  - Abdominal pain lower [Not Recovered/Not Resolved]
  - Peritonitis [None]
  - Abdominal rigidity [None]
